FAERS Safety Report 7546233-7 (Version None)
Quarter: 2011Q2

REPORT INFORMATION
  Report Type: 
  Country: None (occurrence: None)
  Receive Date: 20110614
  Receipt Date: 20040224
  Transmission Date: 20111010
  Serious: Yes (Other)
  Sender: FDA-Public Use
  Company Number: PHFR2002GB04385

PATIENT
  Sex: Male

DRUGS (1)
  1. CLOZAPINE [Suspect]
     Indication: SCHIZOPHRENIA
     Route: 048

REACTIONS (4)
  - PYREXIA [None]
  - LOWER RESPIRATORY TRACT INFECTION [None]
  - NON-HODGKIN'S LYMPHOMA [None]
  - MALAISE [None]
